FAERS Safety Report 12401948 (Version 2)
Quarter: 2016Q2

REPORT INFORMATION
  Report Type: Spontaneous
  Country: US (occurrence: US)
  Receive Date: 20160525
  Receipt Date: 20160527
  Transmission Date: 20160815
  Serious: No
  Sender: FDA-Public Use
  Company Number: US-SA-2015SA210177

PATIENT
  Age: 72 Year
  Sex: Male

DRUGS (8)
  1. LANTUS SOLOSTAR [Suspect]
     Active Substance: INSULIN GLARGINE
     Indication: TYPE 2 DIABETES MELLITUS
     Dosage: DOSE:25 UNIT(S)
     Route: 065
     Dates: start: 20151130
  2. NOVOLOG [Suspect]
     Active Substance: INSULIN ASPART
     Indication: TYPE 2 DIABETES MELLITUS
     Dosage: DOSE:10 UNIT(S)
     Route: 065
  3. NOVOLOG [Suspect]
     Active Substance: INSULIN ASPART
     Indication: TYPE 2 DIABETES MELLITUS
     Dosage: 10 UNITS IN THE MORNING AND 10 UNITS AT NIGHT DOSE:10 UNIT(S)
     Route: 065
     Dates: start: 20151130
  4. SOLOSTAR [Concomitant]
     Active Substance: DEVICE
     Indication: TYPE 2 DIABETES MELLITUS
  5. LANTUS SOLOSTAR [Suspect]
     Active Substance: INSULIN GLARGINE
     Indication: TYPE 2 DIABETES MELLITUS
     Dosage: DOSE:20 UNIT(S)
     Route: 065
  6. ONGLYZA [Concomitant]
     Active Substance: SAXAGLIPTIN HYDROCHLORIDE
     Route: 048
  7. GLIPIZIDE. [Concomitant]
     Active Substance: GLIPIZIDE
  8. SOLOSTAR [Concomitant]
     Active Substance: DEVICE
     Indication: TYPE 2 DIABETES MELLITUS
     Dates: start: 20151130

REACTIONS (3)
  - Blood glucose fluctuation [Unknown]
  - Tremor [Unknown]
  - Drug administration error [Unknown]
